FAERS Safety Report 9681178 (Version 1)
Quarter: 2013Q4

REPORT INFORMATION
  Report Type: Spontaneous
  Country: US (occurrence: US)
  Receive Date: 20131111
  Receipt Date: 20131111
  Transmission Date: 20140711
  Serious: Yes (Other)
  Sender: FDA-Public Use
  Company Number: US-BAYER-2013-136002

PATIENT
  Age: 36 Year
  Sex: Female

DRUGS (10)
  1. YASMIN [Suspect]
     Route: 048
  2. OCELLA [Suspect]
     Route: 048
  3. PRILOSEC [Concomitant]
  4. BENTYL [Concomitant]
  5. PEPCID [Concomitant]
     Route: 048
  6. MORPHINE [Concomitant]
     Dosage: 6 MG; UNK
     Route: 042
  7. REGLAN [Concomitant]
     Dosage: 10 MG, UNK
     Route: 042
  8. DILAUDID [Concomitant]
     Dosage: 100 MG, UNK
     Route: 042
  9. ZOFRAN [Concomitant]
  10. TORADOL [Concomitant]
     Dosage: 30 MG, UNK
     Route: 042

REACTIONS (1)
  - Cholecystitis [None]
